FAERS Safety Report 18713657 (Version 1)
Quarter: 2021Q1

REPORT INFORMATION
  Report Type: Spontaneous
  Country: US (occurrence: US)
  Receive Date: 20210107
  Receipt Date: 20210107
  Transmission Date: 20210419
  Serious: Yes (Hospitalization)
  Sender: FDA-Public Use
  Company Number: US-BAUSCH-BL-2020-039762

PATIENT
  Age: 18 Year
  Sex: Female

DRUGS (1)
  1. DILTIAZEM. [Suspect]
     Active Substance: DILTIAZEM
     Indication: PRODUCT USED FOR UNKNOWN INDICATION
     Dosage: 10 OF HER MOTHER^S DILTIAZEM PILLS
     Route: 065

REACTIONS (3)
  - Atrioventricular block complete [Unknown]
  - Prescription drug used without a prescription [Unknown]
  - Intentional overdose [Unknown]
